FAERS Safety Report 5727815-1 (Version None)
Quarter: 2008Q2

REPORT INFORMATION
  Report Type: 
  Country: None (occurrence: None)
  Receive Date: 20080505
  Receipt Date: 20080423
  Transmission Date: 20081010
  Serious: Yes (Other)
  Sender: FDA-Public Use
  Company Number: US-PFIZER INC-2008037284

PATIENT
  Sex: Female
  Weight: 68.181 kg

DRUGS (3)
  1. CHANTIX [Suspect]
     Indication: SMOKING CESSATION THERAPY
  2. SYNTHROID [Concomitant]
  3. ENTOCORT EC [Concomitant]
     Indication: COLITIS

REACTIONS (2)
  - MUSCLE SPASMS [None]
  - PAIN [None]
